FAERS Safety Report 4517268-3 (Version None)
Quarter: 2004Q4

REPORT INFORMATION
  Report Type: 
  Country: None (occurrence: None)
  Receive Date: 20041001
  Receipt Date: 20040602
  Transmission Date: 20050328
  Serious: Yes (Other)
  Sender: FDA-Public Use
  Company Number: PHEH2004US06057

PATIENT
  Age: 56 Year
  Sex: Female

DRUGS (5)
  1. LOPRESSOR [Suspect]
     Indication: ATRIAL FIBRILLATION
     Dosage: 50 MG, QD,
     Dates: start: 19980101
  2. SYNTHROID [Concomitant]
  3. PRILOSEC [Concomitant]
  4. ASPIRIN [Concomitant]
  5. ASTELIN [Concomitant]

REACTIONS (3)
  - DIZZINESS [None]
  - HALLUCINATION [None]
  - VERTIGO [None]
